FAERS Safety Report 17706080 (Version 3)
Quarter: 2020Q2

REPORT INFORMATION
  Report Type: Report from Study
  Country: DE (occurrence: DE)
  Receive Date: 20200424
  Receipt Date: 20200507
  Transmission Date: 20200714
  Serious: Yes (Hospitalization)
  Sender: FDA-Public Use
  Company Number: DE-JNJFOC-20200236262

PATIENT
  Age: 73 Year
  Sex: Female
  Weight: 92 kg

DRUGS (18)
  1. RIFAMPICIN [Concomitant]
     Active Substance: RIFAMPIN
     Indication: PERITONEAL TUBERCULOSIS
     Dates: start: 20200308
  2. AZOPT [Concomitant]
     Active Substance: BRINZOLAMIDE
     Indication: GLAUCOMA
     Dates: start: 2000
  3. ZYLORIC [Concomitant]
     Active Substance: ALLOPURINOL
     Indication: PERITONEAL TUBERCULOSIS
     Dates: start: 20200308
  4. L-THYROXIN [Concomitant]
     Active Substance: LEVOTHYROXINE SODIUM
     Indication: HYPOTHYROIDISM
     Dates: start: 20181017, end: 20190108
  5. PYRAZINAMIDE. [Concomitant]
     Active Substance: PYRAZINAMIDE
     Indication: PERITONEAL TUBERCULOSIS
     Dates: start: 20200310
  6. ETHAMBUTOL [Concomitant]
     Active Substance: ETHAMBUTOL HYDROCHLORIDE
     Indication: PERITONEAL TUBERCULOSIS
     Dates: start: 20200312
  7. XALATAN [Concomitant]
     Active Substance: LATANOPROST
     Indication: GLAUCOMA
     Dates: start: 2000
  8. VITAMIN B DUO [Concomitant]
     Indication: PERITONEAL TUBERCULOSIS
     Dates: start: 20200308
  9. SIMPONI [Suspect]
     Active Substance: GOLIMUMAB
     Indication: COLITIS ULCERATIVE
     Route: 058
     Dates: start: 20170329, end: 20190504
  10. BREO ELLIPTA [Concomitant]
     Active Substance: FLUTICASONE FUROATE\VILANTEROL TRIFENATATE
     Indication: ASTHMA
     Dates: start: 2000
  11. ISONIAZID. [Concomitant]
     Active Substance: ISONIAZID
     Indication: PERITONEAL TUBERCULOSIS
     Dates: start: 20200306
  12. SIMPONI [Suspect]
     Active Substance: GOLIMUMAB
     Route: 058
     Dates: start: 20191005, end: 20200126
  13. BREO ELLIPTA [Concomitant]
     Active Substance: FLUTICASONE FUROATE\VILANTEROL TRIFENATATE
     Indication: ASTHMA
     Dates: start: 2000
  14. EBRANTIL                           /00631801/ [Concomitant]
     Active Substance: URAPIDIL
     Indication: HYPERTENSION
     Dates: start: 20180517
  15. THIOPURINOL [Concomitant]
  16. MERONEM [Concomitant]
     Active Substance: MEROPENEM
     Indication: PERITONEAL TUBERCULOSIS
     Dates: start: 20200221, end: 20200223
  17. L-THYROXIN [Concomitant]
     Active Substance: LEVOTHYROXINE SODIUM
     Dates: start: 20190108
  18. PYLERA [Concomitant]
     Active Substance: BISMUTH SUBCITRATE POTASSIUM\METRONIDAZOLE\TETRACYCLINE HYDROCHLORIDE
     Indication: GASTRITIS
     Dates: start: 20191116, end: 20191201

REACTIONS (1)
  - Peritoneal tuberculosis [Not Recovered/Not Resolved]

NARRATIVE: CASE EVENT DATE: 20200110
